FAERS Safety Report 9177054 (Version 1)
Quarter: 2013Q1

REPORT INFORMATION
  Report Type: Spontaneous
  Country: US (occurrence: US)
  Receive Date: 20130321
  Receipt Date: 20130321
  Transmission Date: 20140127
  Serious: No
  Sender: FDA-Public Use
  Company Number: US-PFIZER INC-2013092230

PATIENT
  Age: 37 Year
  Sex: Male
  Weight: 97.51 kg

DRUGS (3)
  1. CHANTIX [Suspect]
     Indication: SMOKING CESSATION THERAPY
     Dosage: 0.5 MG, 1X/DAY
     Route: 048
     Dates: start: 20130305
  2. CHANTIX [Suspect]
     Dosage: UNK
     Route: 048
  3. MOTRIN [Concomitant]
     Indication: MUSCLE STRAIN
     Dosage: 800 MG, 1X/DAY

REACTIONS (1)
  - Headache [Unknown]
